FAERS Safety Report 6673811-X (Version None)
Quarter: 2010Q2

REPORT INFORMATION
  Report Type: 
  Country: None (occurrence: None)
  Receive Date: 20100407
  Receipt Date: 20100331
  Transmission Date: 20101027
  Serious: Yes (Other)
  Sender: FDA-Public Use
  Company Number: 2010SP019484

PATIENT
  Age: 86 Year
  Sex: Female

DRUGS (2)
  1. CLARITIN [Suspect]
     Indication: HYPERSENSITIVITY
     Dosage: PO
     Route: 048
     Dates: start: 20100301
  2. VITAMINS [Concomitant]

REACTIONS (2)
  - LIP SWELLING [None]
  - SWELLING FACE [None]
